FAERS Safety Report 7112810-0 (Version None)
Quarter: 2010Q4

REPORT INFORMATION
  Report Type: 
  Country: None (occurrence: None)
  Receive Date: 20101119
  Receipt Date: 20101110
  Transmission Date: 20110411
  Serious: Yes (Hospitalization, Other)
  Sender: FDA-Public Use
  Company Number: JP-JNJFOC-20101002738

PATIENT
  Age: 16 Year
  Sex: Female
  Weight: 61 kg

DRUGS (11)
  1. REMICADE [Suspect]
     Indication: CROHN'S DISEASE
     Dosage: TOTAL OF 13 DOSES RECEIVED
     Route: 042
  2. REMICADE [Suspect]
     Dosage: 2 DOSES
     Route: 042
  3. REMICADE [Suspect]
     Dosage: 8 DOSES
     Route: 042
  4. REMICADE [Suspect]
     Route: 042
  5. REMICADE [Suspect]
     Dosage: 2 DOSES
     Route: 042
  6. REMICADE [Suspect]
     Dosage: 8 DOSES
     Route: 042
  7. ALLEGRA [Concomitant]
     Indication: SEASONAL ALLERGY
     Route: 048
  8. MAGLAX [Concomitant]
     Indication: CONSTIPATION
     Route: 048
  9. SELBEX [Concomitant]
     Indication: CROHN'S DISEASE
     Route: 048
  10. PENTASA [Concomitant]
     Indication: CROHN'S DISEASE
     Route: 048
  11. BIO-THREE [Concomitant]
     Indication: CROHN'S DISEASE
     Route: 048

REACTIONS (1)
  - URINARY TRACT INFECTION BACTERIAL [None]
